FAERS Safety Report 7620196-8 (Version None)
Quarter: 2011Q3

REPORT INFORMATION
  Report Type: 
  Country: None (occurrence: None)
  Receive Date: 20110719
  Receipt Date: 20110705
  Transmission Date: 20111222
  Serious: Yes (Hospitalization, Other)
  Sender: FDA-Public Use
  Company Number: PHHY2011JP62025

PATIENT
  Sex: Male
  Weight: 44 kg

DRUGS (10)
  1. VALSARTAN [Suspect]
     Dosage: 80 MG, UNK
     Route: 048
  2. ADALAT CC [Concomitant]
     Indication: HYPERTENSION
     Dosage: 10 MG, UNK
     Route: 048
     Dates: start: 20060418, end: 20080812
  3. LASIX [Concomitant]
     Dosage: 40 MG, UNK
     Route: 048
  4. CARVEDILOL [Concomitant]
     Indication: HYPERTENSION
     Dosage: 10 MG, UNK
     Route: 048
     Dates: start: 20060418
  5. CARVEDILOL [Concomitant]
     Dosage: 1.25 MG, UNK
     Route: 048
  6. CARVEDILOL [Concomitant]
     Dosage: 2.5 MG, UNK
     Route: 048
  7. LASIX [Concomitant]
     Indication: HYPERTENSION
     Dosage: 20 MG, UNK
     Route: 048
     Dates: start: 20091016
  8. VALSARTAN [Suspect]
     Dosage: 40 MG, QD
     Route: 048
     Dates: start: 20080701, end: 20091005
  9. ATELEC [Concomitant]
     Indication: HYPERTENSION
     Dosage: 10 MG, UNK
     Route: 048
     Dates: start: 20080812, end: 20091005
  10. URSO 250 [Concomitant]
     Dosage: 150 MG, UNK
     Route: 048
     Dates: start: 20091216

REACTIONS (4)
  - HEPATITIS C [None]
  - TRANSAMINASES INCREASED [None]
  - HEPATIC FUNCTION ABNORMAL [None]
  - CARDIAC FAILURE CONGESTIVE [None]
